FAERS Safety Report 7844331-1 (Version None)
Quarter: 2011Q4

REPORT INFORMATION
  Report Type: 
  Country: None (occurrence: None)
  Receive Date: 20111025
  Receipt Date: 20111005
  Transmission Date: 20120403
  Serious: No
  Sender: FDA-Public Use
  Company Number: US-ROXANE LABORATORIES, INC.-2011-RO-01421RO

PATIENT
  Sex: Female

DRUGS (1)
  1. CYCLOPHOSPHAMIDE [Suspect]

REACTIONS (1)
  - BLOOD PHOSPHORUS INCREASED [None]
